FAERS Safety Report 8984130 (Version 1)
Quarter: 2012Q4

REPORT INFORMATION
  Report Type: Spontaneous
  Country: TR (occurrence: None)
  Receive Date: 20121212
  Receipt Date: 20121212
  Transmission Date: 20130627
  Serious: Yes (Other)
  Sender: FDA-Public Use
  Company Number: THQ2011A03384

PATIENT
  Age: 48 Year
  Sex: Male

DRUGS (2)
  1. LANSOPRAZOLE [Suspect]
  2. AMOXICILLIN [Suspect]

REACTIONS (3)
  - Hodgkin^s disease [None]
  - Eczema [None]
  - Drug interaction [None]
